FAERS Safety Report 23338246 (Version 1)
Quarter: 2023Q4

REPORT INFORMATION
  Report Type: Spontaneous
  Country: US (occurrence: US)
  Receive Date: 20231226
  Receipt Date: 20231226
  Transmission Date: 20240110
  Serious: Yes (Hospitalization)
  Sender: FDA-Public Use
  Company Number: US-JNJFOC-20231255546

PATIENT
  Sex: Female

DRUGS (1)
  1. OPSUMIT [Suspect]
     Active Substance: MACITENTAN
     Indication: Product used for unknown indication
     Route: 048
     Dates: start: 20210331

REACTIONS (3)
  - Internal haemorrhage [Not Recovered/Not Resolved]
  - Hospitalisation [Not Recovered/Not Resolved]
  - Blood iron decreased [Not Recovered/Not Resolved]
